FAERS Safety Report 9602627 (Version 1)
Quarter: 2013Q4

REPORT INFORMATION
  Report Type: Spontaneous
  Country: US (occurrence: US)
  Receive Date: 20131007
  Receipt Date: 20131007
  Transmission Date: 20140711
  Serious: No
  Sender: FDA-Public Use
  Company Number: US-PFIZER INC-2013285552

PATIENT
  Age: 84 Year
  Sex: Female
  Weight: 61.22 kg

DRUGS (3)
  1. LYRICA [Suspect]
     Indication: NEUROPATHY PERIPHERAL
     Dosage: 50 MG, 1X/DAY
     Route: 048
     Dates: start: 201307
  2. PLAVIX [Concomitant]
     Dosage: 75 MG, UNK
  3. AVAPRO [Concomitant]
     Indication: HYPERTENSION
     Dosage: 55 MG, UNK

REACTIONS (1)
  - Dizziness [Unknown]
